FAERS Safety Report 21397464 (Version 4)
Quarter: 2023Q1

REPORT INFORMATION
  Report Type: Spontaneous
  Country: US (occurrence: US)
  Receive Date: 20220930
  Receipt Date: 20230105
  Transmission Date: 20230418
  Serious: Yes (Other)
  Sender: FDA-Public Use
  Company Number: US-PFIZER INC-PV202200072968

PATIENT
  Age: 60 Year
  Sex: Male

DRUGS (1)
  1. INLYTA [Suspect]
     Active Substance: AXITINIB
     Dosage: UNK

REACTIONS (4)
  - Clostridium difficile infection [Unknown]
  - Malaise [Recovering/Resolving]
  - Salivary hypersecretion [Unknown]
  - Dysphonia [Unknown]

NARRATIVE: CASE EVENT DATE: 20220901
